FAERS Safety Report 4869745-3 (Version None)
Quarter: 2005Q4

REPORT INFORMATION
  Report Type: 
  Country: None (occurrence: None)
  Receive Date: 20051223
  Receipt Date: 20051206
  Transmission Date: 20060501
  Serious: Yes (Hospitalization)
  Sender: FDA-Public Use
  Company Number: USA050599063

PATIENT
  Age: 83 Year
  Sex: Female
  Weight: 57.7 kg

DRUGS (4)
  1. FORTEO [Suspect]
     Indication: OSTEOPOROSIS
     Dosage: 20 UG, DAILY (1/D)
     Dates: start: 20050515, end: 20050809
  2. FORTEO PEN, 250MCG/ML (3ML) (FORTEO PEN 250MCG/ML (3ML)) [Concomitant]
  3. PEN, DISPOSABLE [Concomitant]
  4. FORTEO PEN, 250MCG/ML(3ML) (FORTEO PEN 250MCG/ML (3 ML))PEN, DISPOSABL [Concomitant]

REACTIONS (9)
  - ASTHENIA [None]
  - FATIGUE [None]
  - HEART RATE INCREASED [None]
  - HEART RATE IRREGULAR [None]
  - INSOMNIA [None]
  - MUSCULAR WEAKNESS [None]
  - PALPITATIONS [None]
  - PHARMACEUTICAL PRODUCT COMPLAINT [None]
  - SLEEP DISORDER [None]
